FAERS Safety Report 6920731-9 (Version None)
Quarter: 2010Q3

REPORT INFORMATION
  Report Type: 
  Country: None (occurrence: None)
  Receive Date: 20100812
  Receipt Date: 20100803
  Transmission Date: 20110219
  Serious: Yes (Hospitalization)
  Sender: FDA-Public Use
  Company Number: DE-BAYER-201026527GPV

PATIENT
  Age: 60 Year
  Sex: Female
  Weight: 74 kg

DRUGS (2)
  1. SORAFENIB OR PLACEBO [Suspect]
     Indication: BREAST CANCER METASTATIC
     Dosage: UNIT DOSE: 200 MG
     Route: 048
     Dates: start: 20090805, end: 20100518
  2. DOCETAXEL [Suspect]
     Indication: BREAST CANCER METASTATIC

REACTIONS (2)
  - GENERAL PHYSICAL HEALTH DETERIORATION [None]
  - PAIN [None]
